FAERS Safety Report 17244472 (Version 2)
Quarter: 2020Q1

REPORT INFORMATION
  Report Type: Report from Study
  Country: JP (occurrence: JP)
  Receive Date: 20200107
  Receipt Date: 20200115
  Transmission Date: 20200409
  Serious: Yes (Hospitalization)
  Sender: FDA-Public Use
  Company Number: JP-CELLTRION INC.-2019JP021813

PATIENT

DRUGS (28)
  1. INFLIXIMAB BS FOR I.V. INFUSION100 MG [NK] [Suspect]
     Active Substance: INFLIXIMAB
     Indication: CROHN^S DISEASE
     Dosage: UNK
     Route: 041
     Dates: start: 20161024, end: 20161024
  2. INFLIXIMAB BS FOR I.V. INFUSION100 MG [NK] [Suspect]
     Active Substance: INFLIXIMAB
     Dosage: 300 MG, QD
     Route: 041
     Dates: start: 20170724, end: 20170724
  3. PENTASA [Concomitant]
     Active Substance: MESALAMINE
     Indication: CROHN^S DISEASE
     Dosage: UNK
     Dates: start: 20161001
  4. LEUKERIN [Concomitant]
     Active Substance: MERCAPTOPURINE
     Indication: CROHN^S DISEASE
     Dosage: UNK
     Dates: start: 20161001
  5. INFLIXIMAB BS FOR I.V. INFUSION100 MG [NK] [Suspect]
     Active Substance: INFLIXIMAB
     Dosage: 300 MG, QD
     Route: 041
     Dates: start: 20180618, end: 20180618
  6. ZENTACORT [Concomitant]
     Active Substance: BUDESONIDE
     Indication: CROHN^S DISEASE
     Dosage: UNK
     Dates: start: 20170724
  7. BIOFERMIN R [Concomitant]
     Active Substance: DIETARY SUPPLEMENT\PROBIOTICS
     Indication: CROHN^S DISEASE
     Dosage: UNK
     Dates: start: 20161001
  8. PROCTOSEDYL [CINCHOCAINE HYDROCHLORIDE;HYDROCORTISONE] [Concomitant]
     Indication: ANAL FISTULA
     Dosage: UNK
     Dates: start: 20161001
  9. FEBURIC [Concomitant]
     Active Substance: FEBUXOSTAT
     Indication: HYPERURICAEMIA
     Dosage: UNK
     Dates: start: 20180618
  10. INFLIXIMAB BS FOR I.V. INFUSION100 MG [NK] [Suspect]
     Active Substance: INFLIXIMAB
     Dosage: 300 MG, QD
     Route: 041
     Dates: start: 20161205, end: 20161205
  11. BUSCOPAN [Concomitant]
     Active Substance: BUTYLSCOPOLAMINE BROMIDE
     Indication: CROHN^S DISEASE
     Dosage: UNK
     Dates: start: 20161024, end: 20170528
  12. INCREMIN [FERRIC PYROPHOSPHATE] [Concomitant]
     Indication: IRON DEFICIENCY ANAEMIA
     Dosage: UNK
     Dates: start: 20170724
  13. INFLIXIMAB BS FOR I.V. INFUSION100 MG [NK] [Suspect]
     Active Substance: INFLIXIMAB
     Dosage: 300 MG, QD
     Route: 041
     Dates: start: 20161108, end: 20161108
  14. FLAGYL [METRONIDAZOLE BENZOATE] [Concomitant]
     Active Substance: METRONIDAZOLE BENZOATE
     Indication: ANAL FISTULA
     Dosage: UNK
     Dates: start: 20161001, end: 20170723
  15. ALLOPURINOL. [Concomitant]
     Active Substance: ALLOPURINOL
     Indication: HYPERURICAEMIA
     Dosage: UNK
     Dates: start: 20161001, end: 20180617
  16. FERROMIA [Concomitant]
     Active Substance: SODIUM FERROUS CITRATE
     Indication: IRON DEFICIENCY ANAEMIA
     Dosage: UNK
     Dates: start: 20161001, end: 20170528
  17. NEXIUM I.V. [Concomitant]
     Active Substance: ESOMEPRAZOLE SODIUM
     Indication: DUODENAL ULCER
     Dosage: UNK
     Dates: start: 20161001
  18. INFLIXIMAB BS FOR I.V. INFUSION100 MG [NK] [Suspect]
     Active Substance: INFLIXIMAB
     Dosage: 300 MG, QD
     Route: 041
     Dates: start: 20171218, end: 20171218
  19. PREDONEMA [Concomitant]
     Active Substance: PREDNISOLONE SODIUM PHOSPHATE
     Indication: CROHN^S DISEASE
     Dosage: UNK
     Dates: start: 20161024, end: 20170528
  20. VITAMEDIN [BENFOTIAMINE;CYANOCOBALAMIN;PYRIDOXINE HYDROCHLORIDE] [Concomitant]
     Indication: SHORT-BOWEL SYNDROME
     Dosage: UNK
     Dates: start: 20161001
  21. INFLIXIMAB BS FOR I.V. INFUSION100 MG [NK] [Suspect]
     Active Substance: INFLIXIMAB
     Dosage: 300 MG, QD
     Route: 041
     Dates: start: 20171106, end: 20171106
  22. ENSURE H [Concomitant]
     Active Substance: CARBOHYDRATES\FATTY ACIDS\MINERALS\PROTEIN\VITAMINS
     Indication: CROHN^S DISEASE
     Dosage: UNK
     Dates: start: 20161001
  23. FOLIAMIN [Concomitant]
     Active Substance: FOLIC ACID
     Indication: SHORT-BOWEL SYNDROME
     Dosage: UNK
     Dates: start: 20161001
  24. PROMAC [POLAPREZINC] [Concomitant]
     Active Substance: POLAPREZINC
     Indication: SHORT-BOWEL SYNDROME
     Dosage: UNK
     Dates: start: 20161001
  25. INFLIXIMAB BS FOR I.V. INFUSION100 MG [NK] [Suspect]
     Active Substance: INFLIXIMAB
     Dosage: 300 MG, QD
     Route: 041
     Dates: start: 20180226, end: 20180226
  26. LOPEMIN [LOPERAMIDE HYDROCHLORIDE] [Concomitant]
     Active Substance: LOPERAMIDE HYDROCHLORIDE
     Indication: CROHN^S DISEASE
     Dosage: UNK
     Dates: start: 20161024
  27. GASCON [Concomitant]
     Active Substance: DIMETHICONE
     Indication: CROHN^S DISEASE
     Dosage: UNK
     Dates: start: 20161001
  28. ALFAROL [Concomitant]
     Active Substance: ALFACALCIDOL
     Indication: OSTEOPOROSIS
     Dosage: UNK
     Dates: start: 20161001, end: 20180617

REACTIONS (9)
  - Upper respiratory tract inflammation [Recovered/Resolved]
  - Overdose [Unknown]
  - Anaemia [Recovering/Resolving]
  - Nasopharyngitis [Recovered/Resolved]
  - Lower gastrointestinal haemorrhage [Recovering/Resolving]
  - Nasopharyngitis [Recovered/Resolved]
  - Abdominal pain [Recovering/Resolving]
  - Influenza [Recovered/Resolved]
  - Hypophosphataemia [Recovering/Resolving]

NARRATIVE: CASE EVENT DATE: 20161108
